FAERS Safety Report 6369675-4 (Version None)
Quarter: 2009Q3

REPORT INFORMATION
  Report Type: 
  Country: None (occurrence: None)
  Receive Date: 20090923
  Receipt Date: 20090831
  Transmission Date: 20100115
  Serious: Yes (Hospitalization)
  Sender: FDA-Public Use
  Company Number: US-BAYER-200926629GPV

PATIENT
  Age: 63 Year
  Sex: Male
  Weight: 78 kg

DRUGS (14)
  1. CAMPATH [Suspect]
     Indication: CHRONIC LYMPHOCYTIC LEUKAEMIA
     Dosage: TOTAL DAILY DOSE: 30 MG
     Route: 058
     Dates: start: 20090615, end: 20090715
  2. BISEPTOL [Concomitant]
     Dates: start: 20090401
  3. HYDROCHLOROTHIAZIDE [Concomitant]
     Dates: start: 20090601
  4. MILURIT [Concomitant]
     Dates: start: 20090614
  5. HELICID [Concomitant]
     Dates: start: 20090618
  6. DEGAN [Concomitant]
     Dates: start: 20090622
  7. ZOVIRAX [Concomitant]
     Indication: PROPHYLAXIS
     Dates: start: 20090614, end: 20090717
  8. ZOVIRAX [Concomitant]
     Dosage: AS USED: 400 MG
     Dates: start: 20090724
  9. URSOSAN [Concomitant]
  10. SUMETROLIM [Concomitant]
  11. SILYMARIN [Concomitant]
  12. CIPRINOL [Concomitant]
     Dates: end: 20090726
  13. ZYRTEC [Concomitant]
  14. CIPHIN [Concomitant]

REACTIONS (4)
  - BILE DUCT OBSTRUCTION [None]
  - CHOLANGITIS ACUTE [None]
  - HEPATIC FUNCTION ABNORMAL [None]
  - VIRAL DNA TEST POSITIVE [None]
